FAERS Safety Report 6402194-5 (Version None)
Quarter: 2009Q4

REPORT INFORMATION
  Report Type: 
  Country: None (occurrence: None)
  Receive Date: 20091014
  Receipt Date: 20091014
  Transmission Date: 20100525
  Serious: Yes (Hospitalization, Disabling)
  Sender: FDA-Public Use
  Company Number: None

PATIENT
  Age: 66 Year
  Sex: Male
  Weight: 145.151 kg

DRUGS (2)
  1. TOPIRAMATE [Suspect]
     Indication: NEUROPATHY PERIPHERAL
     Dosage: 3 TABLETS @ BEDTIME BY MOUTH
     Route: 048
     Dates: start: 20090914, end: 20090919
  2. TOPIRAMATE [Suspect]
     Indication: PAIN
     Dosage: 3 TABLETS @ BEDTIME BY MOUTH
     Route: 048
     Dates: start: 20090914, end: 20090919

REACTIONS (13)
  - BODY TEMPERATURE FLUCTUATION [None]
  - CONFUSIONAL STATE [None]
  - DECREASED APPETITE [None]
  - DIARRHOEA [None]
  - DIZZINESS [None]
  - GASTROINTESTINAL PAIN [None]
  - HYPOAESTHESIA [None]
  - MEMORY IMPAIRMENT [None]
  - NAUSEA [None]
  - PARAESTHESIA [None]
  - PRURITUS [None]
  - VISION BLURRED [None]
  - VISUAL IMPAIRMENT [None]
